FAERS Safety Report 24538423 (Version 5)
Quarter: 2025Q1

REPORT INFORMATION
  Report Type: Spontaneous
  Country: US (occurrence: US)
  Receive Date: 20241023
  Receipt Date: 20250221
  Transmission Date: 20250409
  Serious: Yes (Hospitalization)
  Sender: CATALYST PHARMA
  Company Number: US-CATALYSTPHARMACEUTICALPARTNERS-US-CATA-24-01187

PATIENT
  Age: 5 Year
  Sex: Male

DRUGS (6)
  1. AGAMREE [Suspect]
     Active Substance: VAMOROLONE
     Indication: Duchenne muscular dystrophy
     Dosage: 6 MILLIGRAM/KILOGRAM ONCE A DAY
     Route: 065
     Dates: start: 20240911, end: 20241009
  2. ELEVIDYS [Suspect]
     Active Substance: DELANDISTROGENE MOXEPARVOVEC-ROKL
     Indication: Duchenne muscular dystrophy
     Route: 042
     Dates: start: 20240506, end: 20240506
  3. PREDNISOLONE [Concomitant]
     Active Substance: PREDNISOLONE
     Indication: Product used for unknown indication
     Route: 065
     Dates: start: 20240910, end: 2024
  4. PREDNISOLONE [Concomitant]
     Active Substance: PREDNISOLONE
     Dosage: 1 MG/KG/DAY
     Route: 065
     Dates: start: 20241009, end: 20241009
  5. PREDNISOLONE [Concomitant]
     Active Substance: PREDNISOLONE
     Dosage: 1.5 MG/KG/DAY
     Route: 065
     Dates: start: 20241010
  6. GENE THERAPY [Concomitant]
     Indication: Product used for unknown indication
     Route: 065
     Dates: end: 20240910

REACTIONS (3)
  - Troponin I increased [Recovered/Resolved]
  - Gamma-glutamyltransferase increased [Unknown]
  - Transaminases increased [Unknown]
